FAERS Safety Report 21944498 (Version 1)
Quarter: 2023Q1

REPORT INFORMATION
  Report Type: Spontaneous
  Country: CN (occurrence: CN)
  Receive Date: 20230202
  Receipt Date: 20230202
  Transmission Date: 20230418
  Serious: Yes (Other)
  Sender: FDA-Public Use
  Company Number: None

PATIENT
  Age: 47 Year
  Sex: Female

DRUGS (4)
  1. CYCLOPHOSPHAMIDE [Suspect]
     Active Substance: CYCLOPHOSPHAMIDE
     Indication: Breast cancer female
     Dosage: 0.9 G, QD (DILUTED WITH SODIUM CHLORIDE 50 ML)
     Route: 041
     Dates: start: 20230106, end: 20230106
  2. SODIUM CHLORIDE [Suspect]
     Active Substance: SODIUM CHLORIDE
     Indication: Medication dilution
     Dosage: 50 ML, QD (USED TO DILUTE 0.9 G CYCLOPHOSPHAMIDE) (NEEDLE)
     Route: 041
     Dates: start: 20230106, end: 20230106
  3. SODIUM CHLORIDE [Suspect]
     Active Substance: SODIUM CHLORIDE
     Dosage: 100 ML, QD (USED TO DILUTE 140 MG EPIRUBICIN HYDROCHLORIDE) (NEEDLE)
     Route: 041
     Dates: start: 20230106, end: 20230106
  4. EPIRUBICIN HYDROCHLORIDE [Suspect]
     Active Substance: EPIRUBICIN HYDROCHLORIDE
     Indication: Breast cancer female
     Dosage: 140 MG, QD (DILUTED WITH SODIUM CHLORIDE 100ML)
     Route: 041
     Dates: start: 20230106, end: 20230106

REACTIONS (3)
  - White blood cell count decreased [Recovered/Resolved]
  - Fatigue [Unknown]
  - Asthenia [Recovering/Resolving]

NARRATIVE: CASE EVENT DATE: 20230120
